FAERS Safety Report 14659549 (Version 2)
Quarter: 2018Q1

REPORT INFORMATION
  Report Type: Spontaneous
  Country: US (occurrence: US)
  Receive Date: 20180320
  Receipt Date: 20180329
  Transmission Date: 20180509
  Serious: Yes (Other)
  Sender: FDA-Public Use
  Company Number: US-SUPERNUS PHARMACEUTICALS, INC.-2018SUP00070

PATIENT
  Age: 43 Year
  Sex: Female
  Weight: 73.47 kg

DRUGS (3)
  1. TROKENDI XR [Suspect]
     Active Substance: TOPIRAMATE
     Dosage: 25 MG, 1X/DAY
     Route: 048
     Dates: start: 201802, end: 20180302
  2. TROKENDI XR [Suspect]
     Active Substance: TOPIRAMATE
     Indication: HEADACHE
     Dosage: 50 MG, 1X/DAY
     Route: 048
     Dates: start: 20180303, end: 20180304
  3. TROKENDI XR [Suspect]
     Active Substance: TOPIRAMATE
     Indication: HEADACHE
     Dosage: 25 MG, 1X/DAY
     Route: 048
     Dates: start: 20180224, end: 201802

REACTIONS (10)
  - Vertigo [Recovering/Resolving]
  - Nausea [Recovering/Resolving]
  - Aphasia [Unknown]
  - Memory impairment [Unknown]
  - Thinking abnormal [Unknown]
  - Tinnitus [Not Recovered/Not Resolved]
  - Off label use [Recovered/Resolved]
  - Deafness unilateral [Not Recovered/Not Resolved]
  - Balance disorder [Recovering/Resolving]
  - Cognitive disorder [Unknown]

NARRATIVE: CASE EVENT DATE: 2018
